FAERS Safety Report 6113102-9 (Version None)
Quarter: 2009Q1

REPORT INFORMATION
  Report Type: 
  Country: None (occurrence: None)
  Receive Date: 20090312
  Receipt Date: 20090306
  Transmission Date: 20090719
  Serious: Yes (Disabling)
  Sender: FDA-Public Use
  Company Number: US-MERCK-0805USA00928

PATIENT
  Age: 51 Year
  Sex: Female
  Weight: 45 kg

DRUGS (2)
  1. FOSAMAX [Suspect]
     Indication: OSTEOPENIA
     Route: 048
     Dates: start: 20040101, end: 20050101
  2. FOSAMAX PLUS D [Suspect]
     Indication: OSTEOPENIA
     Route: 048
     Dates: start: 20060101

REACTIONS (8)
  - DENTAL CARIES [None]
  - EMOTIONAL DISTRESS [None]
  - GINGIVAL SWELLING [None]
  - LOOSE TOOTH [None]
  - RESORPTION BONE INCREASED [None]
  - TOOTH ABSCESS [None]
  - TOOTH DISORDER [None]
  - VAGINAL DISCHARGE [None]
